FAERS Safety Report 13959492 (Version 1)
Quarter: 2017Q3

REPORT INFORMATION
  Report Type: Report from Study
  Country: AU (occurrence: AU)
  Receive Date: 20170911
  Receipt Date: 20170911
  Transmission Date: 20171128
  Serious: Yes (Death, Other)
  Sender: FDA-Public Use
  Company Number: AU-REGENERON PHARMACEUTICALS, INC.-2017-21637

PATIENT

DRUGS (2)
  1. EYLEA [Suspect]
     Active Substance: AFLIBERCEPT
     Dosage: LAST DOSE PRIOR THE DEATH
     Dates: start: 201706, end: 201706
  2. EYLEA [Suspect]
     Active Substance: AFLIBERCEPT
     Indication: NEOVASCULAR AGE-RELATED MACULAR DEGENERATION
     Dosage: UNK
     Route: 031
     Dates: start: 20170315

REACTIONS (4)
  - Adrenocortical steroid therapy [Unknown]
  - Cardiac failure [Fatal]
  - Drug dose omission [Unknown]
  - Lung disorder [Fatal]

NARRATIVE: CASE EVENT DATE: 20170823
